FAERS Safety Report 4782624-5 (Version None)
Quarter: 2005Q3

REPORT INFORMATION
  Report Type: 
  Country: None (occurrence: None)
  Receive Date: 20050929
  Receipt Date: 20050503
  Transmission Date: 20060218
  Serious: No
  Sender: FDA-Public Use
  Company Number: US-GLAXOSMITHKLINE-A0557093A

PATIENT
  Age: 73 Year
  Sex: Male

DRUGS (5)
  1. COREG [Suspect]
     Dosage: 12.5MG TWICE PER DAY
     Route: 048
     Dates: start: 20050328
  2. LASIX [Concomitant]
  3. LISINOPRIL [Concomitant]
  4. AMIODARONE [Concomitant]
  5. ASPIRIN [Concomitant]

REACTIONS (5)
  - ABDOMINAL PAIN UPPER [None]
  - BODY TEMPERATURE DECREASED [None]
  - FATIGUE [None]
  - VOMITING [None]
  - WEIGHT DECREASED [None]
